FAERS Safety Report 11157974 (Version 2)
Quarter: 2015Q2

REPORT INFORMATION
  Report Type: Spontaneous
  Country: IT (occurrence: IT)
  Receive Date: 20150603
  Receipt Date: 20150616
  Transmission Date: 20150821
  Serious: Yes (Hospitalization)
  Sender: FDA-Public Use
  Company Number: IT-TEVA-566491ACC

PATIENT
  Age: 17 Year
  Sex: Male
  Weight: 76 kg

DRUGS (1)
  1. PANTOPRAZOLO TEVA - 40 MG COMPRESSE GASTRORESISTENTI [Suspect]
     Active Substance: PANTOPRAZOLE SODIUM
     Indication: HIATUS HERNIA
     Dosage: 1 DOSAGE FORMS DAILY; 1 DF DAILY,GASTRO-RESISTANT TABLET
     Route: 048
     Dates: start: 20150430, end: 20150505

REACTIONS (5)
  - Erythema [Recovering/Resolving]
  - Hyperaemia [Recovering/Resolving]
  - Urticaria [Recovering/Resolving]
  - Pruritus [Recovering/Resolving]
  - Diarrhoea [Recovering/Resolving]

NARRATIVE: CASE EVENT DATE: 20150506
